FAERS Safety Report 8820609 (Version 3)
Quarter: 2012Q4

REPORT INFORMATION
  Report Type: 
  Country: CN (occurrence: CN)
  Receive Date: 20121002
  Receipt Date: 20121107
  Transmission Date: 20130627
  Serious: Yes (Hospitalization)
  Sender: FDA-Public Use
  Company Number: CN-JNJFOC-20120913424

PATIENT
  Sex: Male

DRUGS (2)
  1. IBUPROFEN [Suspect]
     Route: 048
  2. IBUPROFEN [Suspect]
     Indication: PYREXIA
     Route: 048
     Dates: start: 20100905, end: 20100905

REACTIONS (5)
  - Rash [Recovered/Resolved]
  - Oedema peripheral [Recovered/Resolved]
  - Pruritus [Recovered/Resolved]
  - Drug ineffective [Recovered/Resolved]
  - Mental status changes [Recovered/Resolved]
